FAERS Safety Report 25550341 (Version 1)
Quarter: 2025Q3

REPORT INFORMATION
  Report Type: Spontaneous
  Country: CN (occurrence: CN)
  Receive Date: 20250714
  Receipt Date: 20250714
  Transmission Date: 20251020
  Serious: Yes (Hospitalization, Disabling)
  Sender: PFIZER
  Company Number: CN-PFIZER INC-PV202500082348

PATIENT
  Age: 55 Year
  Sex: Female
  Weight: 67 kg

DRUGS (6)
  1. METHOTREXATE SODIUM [Suspect]
     Active Substance: METHOTREXATE SODIUM
     Indication: Benign hydatidiform mole
     Dosage: 0.354 G, 1X/DAY
     Route: 041
     Dates: start: 20250624, end: 20250624
  2. DACTINOMYCIN [Suspect]
     Active Substance: DACTINOMYCIN
     Indication: Benign hydatidiform mole
     Dosage: 0.5 MG, 1X/DAY
     Route: 042
     Dates: start: 20250624, end: 20250625
  3. LEUCOVORIN CALCIUM [Suspect]
     Active Substance: LEUCOVORIN CALCIUM
     Indication: Benign hydatidiform mole
     Dosage: 15 MG, 2X/DAY
     Route: 030
     Dates: start: 20250625, end: 20250626
  4. ETOPOSIDE [Suspect]
     Active Substance: ETOPOSIDE
     Indication: Benign hydatidiform mole
     Dosage: 0.177 G, 1X/DAY
     Route: 041
     Dates: start: 20250624, end: 20250625
  5. CYCLOPHOSPHAMIDE [Suspect]
     Active Substance: CYCLOPHOSPHAMIDE
     Indication: Benign hydatidiform mole
     Dosage: 1.062 G, 1X/DAY
     Route: 041
     Dates: start: 20250701, end: 20250701
  6. VINCRISTINE SULFATE [Suspect]
     Active Substance: VINCRISTINE SULFATE
     Indication: Benign hydatidiform mole
     Dosage: 1.77 MG, 1X/DAY
     Route: 042
     Dates: start: 20250701, end: 20250701

REACTIONS (3)
  - Granulocyte count decreased [Recovering/Resolving]
  - Pyrexia [Recovering/Resolving]
  - Lymphocyte count decreased [Recovering/Resolving]

NARRATIVE: CASE EVENT DATE: 20250706
